FAERS Safety Report 14080521 (Version 1)
Quarter: 2017Q4

REPORT INFORMATION
  Report Type: Spontaneous
  Country: US (occurrence: US)
  Receive Date: 20171012
  Receipt Date: 20171012
  Transmission Date: 20180321
  Serious: No
  Sender: FDA-Public Use
  Company Number: US-ASTRAZENECA-2017SF01452

PATIENT
  Sex: Female
  Weight: 77.1 kg

DRUGS (4)
  1. STATIN , IT STARTS WITH ATOR [Concomitant]
     Indication: MYOCARDIAL INFARCTION
  2. BYDUREON [Suspect]
     Active Substance: EXENATIDE
     Indication: TYPE 2 DIABETES MELLITUS
     Route: 058
  3. STATIN , IT STARTS WITH ATOR [Concomitant]
     Indication: BLOOD CHOLESTEROL INCREASED
  4. METFORMIN [Concomitant]
     Active Substance: METFORMIN HYDROCHLORIDE
     Indication: DIABETES MELLITUS
     Route: 048

REACTIONS (3)
  - Injection site nodule [Unknown]
  - Injection site erythema [Unknown]
  - Product quality issue [Unknown]
